FAERS Safety Report 16065854 (Version 1)
Quarter: 2019Q1

REPORT INFORMATION
  Report Type: Spontaneous
  Country: US (occurrence: US)
  Receive Date: 20190211
  Receipt Date: 20190211
  Transmission Date: 20190418
  Serious: Yes (Hospitalization)
  Sender: FDA-Public Use
  Company Number: None

PATIENT
  Age: 55 Year
  Sex: Female

DRUGS (18)
  1. NORCO [Concomitant]
     Active Substance: ACETAMINOPHEN\HYDROCODONE BITARTRATE
  2. FLONASE [Concomitant]
     Active Substance: FLUTICASONE PROPIONATE
  3. SPIRONOLACTONE. [Concomitant]
     Active Substance: SPIRONOLACTONE
  4. PROPRANOLOL [Concomitant]
     Active Substance: PROPRANOLOL HYDROCHLORIDE
  5. VENTOLIN IIFA [Concomitant]
  6. LASIX [Concomitant]
     Active Substance: FUROSEMIDE
  7. LACTULOWE [Concomitant]
  8. MFI-MINERALS [Concomitant]
  9. MS CONTIN [Concomitant]
     Active Substance: MORPHINE SULFATE
  10. OMEPRAZOLE. [Concomitant]
     Active Substance: OMEPRAZOLE
  11. VIT B COMPLEX [Concomitant]
  12. FERROUS SULFATE. [Concomitant]
     Active Substance: FERROUS SULFATE
  13. INSULIN [Concomitant]
     Active Substance: INSULIN NOS
  14. XIFAXAN [Concomitant]
     Active Substance: RIFAXIMIN
  15. LETAIRIS [Suspect]
     Active Substance: AMBRISENTAN
     Indication: PULMONARY ARTERIAL HYPERTENSION
     Route: 048
     Dates: start: 201107
  16. BETAMETHASONE DIPROPIONOLE TOP OINT [Concomitant]
  17. TADALAFIL. [Concomitant]
     Active Substance: TADALAFIL
  18. OMEGA 3 FISH OIL [Concomitant]
     Active Substance: FISH OIL\OMEGA-3 FATTY ACIDS

REACTIONS (5)
  - Hyperglycaemia [None]
  - Pathogen resistance [None]
  - Sepsis [None]
  - Hepatic encephalopathy [None]
  - Escherichia infection [None]

NARRATIVE: CASE EVENT DATE: 20190129
